FAERS Safety Report 17696465 (Version 4)
Quarter: 2024Q3

REPORT INFORMATION
  Report Type: Spontaneous
  Country: US (occurrence: US)
  Receive Date: 20200423
  Receipt Date: 20240703
  Transmission Date: 20241017
  Serious: Yes (Other)
  Sender: PURDUE
  Company Number: US-NAPPMUNDI-USA-2020-0150931

PATIENT
  Sex: Male

DRUGS (4)
  1. OXYCONTIN [Suspect]
     Active Substance: OXYCODONE HYDROCHLORIDE
     Indication: Product used for unknown indication
     Dosage: 40 MG, UNK
     Route: 048
  2. BUPRENORPHINE [Suspect]
     Active Substance: BUPRENORPHINE
     Indication: Product used for unknown indication
     Dosage: UNK
     Route: 062
  3. ACETAMINOPHEN\HYDROCODONE BITARTRATE [Suspect]
     Active Substance: ACETAMINOPHEN\HYDROCODONE BITARTRATE
     Indication: Product used for unknown indication
     Dosage: UNK
     Route: 048
  4. TRAMADOL [Suspect]
     Active Substance: TRAMADOL\TRAMADOL HYDROCHLORIDE
     Indication: Product used for unknown indication
     Dosage: UNK
     Route: 048

REACTIONS (6)
  - Cardiac disorder [Unknown]
  - Developmental delay [Unknown]
  - Overdose [Unknown]
  - Drug dependence [Unknown]
  - Impaired quality of life [Unknown]
  - Unevaluable event [Unknown]
